FAERS Safety Report 5336832-5 (Version None)
Quarter: 2007Q2

REPORT INFORMATION
  Report Type: 
  Country: None (occurrence: None)
  Receive Date: 20070524
  Receipt Date: 20070524
  Transmission Date: 20071010
  Serious: Yes (Hospitalization)
  Sender: FDA-Public Use
  Company Number: None

PATIENT
  Age: 55 Year
  Sex: Male
  Weight: 53.5244 kg

DRUGS (2)
  1. FENTANYL [Suspect]
     Indication: BACK PAIN
     Dosage: PT APPLIED 3 PATCHES INSTEAD OF ONE AS PRESCRIBED - SELF OVERDOSED
  2. PERCOCET [Suspect]

REACTIONS (2)
  - DELIRIUM [None]
  - OVERDOSE [None]
